FAERS Safety Report 16099307 (Version 1)
Quarter: 2019Q1

REPORT INFORMATION
  Report Type: Spontaneous
  Country: FR (occurrence: FR)
  Receive Date: 20190321
  Receipt Date: 20190321
  Transmission Date: 20190418
  Serious: Yes (Other)
  Sender: FDA-Public Use
  Company Number: FR-TEVA-2019-FR-1028781

PATIENT
  Age: 22 Year
  Sex: Female
  Weight: 80 kg

DRUGS (3)
  1. LAMICTAL [Suspect]
     Active Substance: LAMOTRIGINE
     Indication: EPILEPSY
     Dosage: 450 MILLIGRAM DAILY; DOSAGE FORM: UNSPECIFIED
     Route: 048
  2. ETHINYLESTRADIOL W/LEVONORGESTREL [Suspect]
     Active Substance: ETHINYL ESTRADIOL\LEVONORGESTREL
     Indication: CONTRACEPTION
     Dosage: DOSAGE FORM: UNSPECIFIED
     Route: 048
     Dates: start: 2010, end: 2011
  3. EPITOMAX [Interacting]
     Active Substance: TOPIRAMATE
     Indication: EPILEPSY
     Dosage: 50 MILLIGRAM DAILY; DOSAGE FORM: UNSPECIFIED
     Route: 048

REACTIONS (4)
  - Pregnancy with contraceptive device [Recovered/Resolved]
  - Drug ineffective [Recovered/Resolved]
  - Exposure during pregnancy [Unknown]
  - Drug interaction [Recovered/Resolved]

NARRATIVE: CASE EVENT DATE: 2011
